FAERS Safety Report 7192322-9 (Version None)
Quarter: 2010Q4

REPORT INFORMATION
  Report Type: 
  Country: None (occurrence: None)
  Receive Date: 20101222
  Receipt Date: 20101222
  Transmission Date: 20110411
  Serious: Yes (Life-Threatening, Other)
  Sender: FDA-Public Use
  Company Number: None

PATIENT
  Age: 58 Year
  Sex: Female
  Weight: 58.9676 kg

DRUGS (1)
  1. LEVAQUIN [Suspect]
     Indication: SINUSITIS
     Dosage: 500MG 1 A DAY FOR 10DAYS NASAL
     Route: 045
     Dates: start: 20081103, end: 20081113

REACTIONS (7)
  - ARTHRALGIA [None]
  - BACK PAIN [None]
  - CARPAL TUNNEL DECOMPRESSION [None]
  - JOINT SWELLING [None]
  - LIGAMENT RUPTURE [None]
  - PAIN IN EXTREMITY [None]
  - ROTATOR CUFF SYNDROME [None]
